FAERS Safety Report 17441421 (Version 6)
Quarter: 2020Q1

REPORT INFORMATION
  Report Type: Report from Study
  Country: DK (occurrence: DK)
  Receive Date: 20200220
  Receipt Date: 20200320
  Transmission Date: 20200409
  Serious: Yes (Life-Threatening, Hospitalization)
  Sender: FDA-Public Use
  Company Number: DK-CELGENEUS-DNK-20200205539

PATIENT
  Age: 53 Year
  Sex: Male
  Weight: 93 kg

DRUGS (18)
  1. BRENTACORT [Concomitant]
     Indication: ECZEMA INFECTED
     Dosage: 20+10 MG/G
     Route: 065
     Dates: start: 20200131
  2. PANTOPRAZOL [Concomitant]
     Active Substance: PANTOPRAZOLE SODIUM
     Indication: GASTROOESOPHAGEAL REFLUX PROPHYLAXIS
     Dosage: 20 MILLIGRAM
     Route: 065
     Dates: start: 20161107
  3. GEMCITABINE. [Suspect]
     Active Substance: GEMCITABINE
     Dosage: 2160 MILLIGRAM
     Route: 065
     Dates: start: 20200203
  4. PAMOL [Concomitant]
     Active Substance: ACETAMINOPHEN
     Indication: PAIN
     Route: 065
     Dates: start: 20190628
  5. IMODIUM [Concomitant]
     Active Substance: LOPERAMIDE HYDROCHLORIDE
     Indication: DIARRHOEA
     Route: 065
     Dates: start: 20191209
  6. NIZORAL [Concomitant]
     Active Substance: KETOCONAZOLE
     Indication: DANDRUFF
     Dosage: 5 ML FRIDAY MORNING EVERY SECOND WEEK
     Route: 065
     Dates: start: 20191206
  7. HJERTEMAGNYL [Concomitant]
     Indication: ANTICOAGULANT THERAPY
     Dosage: 75 MILLIGRAM
     Route: 065
     Dates: start: 20191206
  8. ABRAXANE [Suspect]
     Active Substance: PACLITAXEL
     Indication: PANCREATIC CARCINOMA
     Dosage: DOSE NOT PROVIDED
     Route: 041
  9. ABRAXANE [Suspect]
     Active Substance: PACLITAXEL
     Dosage: 270 MILLIGRAM
     Route: 041
     Dates: start: 20200127
  10. GEMCITABINE. [Suspect]
     Active Substance: GEMCITABINE
     Indication: PANCREATIC CARCINOMA
     Dosage: DOSE NOT PROVIDED
     Route: 065
     Dates: end: 20200203
  11. TOCILIZUMAB. [Suspect]
     Active Substance: TOCILIZUMAB
     Indication: PANCREATIC CARCINOMA
     Dosage: DOSE NOT PROVIDED
     Route: 065
  12. BLOXAZOC [Concomitant]
     Active Substance: METOPROLOL SUCCINATE
     Indication: BLOOD PRESSURE MEASUREMENT
     Dosage: 50 MILLIGRAM
     Route: 065
     Dates: start: 20200213
  13. BRENTAN [Concomitant]
     Active Substance: HYDROCORTISONE\MICONAZOLE
     Indication: FUNGAL INFECTION
     Dosage: 20 MG
     Route: 065
     Dates: start: 20200131
  14. ANCOZAN [Concomitant]
     Active Substance: LOSARTAN POTASSIUM
     Indication: BLOOD PRESSURE MEASUREMENT
     Dosage: 12.5 MILLIGRAM
     Route: 065
     Dates: start: 20191127
  15. TOCILIZUMAB. [Suspect]
     Active Substance: TOCILIZUMAB
     Dosage: 736 MILLIGRAM
     Route: 065
     Dates: start: 20200110
  16. MOMETASONE SANDOZ [Concomitant]
     Active Substance: MOMETASONE
     Indication: SEASONAL ALLERGY
     Route: 050
     Dates: start: 20170509
  17. ATORVASTATIN [Concomitant]
     Active Substance: ATORVASTATIN
     Indication: BLOOD CHOLESTEROL INCREASED
     Dosage: 10 MILLIGRAM
     Route: 065
     Dates: start: 20191203
  18. MOTILIUM [Concomitant]
     Active Substance: DOMPERIDONE
     Indication: NAUSEA
     Route: 065
     Dates: start: 20200127

REACTIONS (5)
  - Pancreatitis [Recovered/Resolved]
  - Pneumonia [Recovered/Resolved]
  - Constipation [Recovered/Resolved]
  - Pneumonitis [Recovered/Resolved]
  - Cholangitis [Recovered/Resolved]

NARRATIVE: CASE EVENT DATE: 20200214
